FAERS Safety Report 9473082 (Version 2)
Quarter: 2013Q3

REPORT INFORMATION
  Report Type: Spontaneous
  Country: US (occurrence: US)
  Receive Date: 20130823
  Receipt Date: 20130823
  Transmission Date: 20140515
  Serious: Yes (Other)
  Sender: FDA-Public Use
  Company Number: US-BRISTOL-MYERS SQUIBB COMPANY-17413105

PATIENT
  Age: 42 Year
  Sex: Male

DRUGS (4)
  1. SPRYCEL [Suspect]
  2. SPORANOX [Interacting]
  3. INSULIN [Concomitant]
  4. LASIX [Concomitant]

REACTIONS (3)
  - Malignant neoplasm progression [Unknown]
  - Histoplasmosis [Unknown]
  - Drug interaction [Unknown]
